FAERS Safety Report 10075557 (Version 1)
Quarter: 2014Q2

REPORT INFORMATION
  Report Type: Spontaneous
  Country: US (occurrence: None)
  Receive Date: 20140411
  Receipt Date: 20140411
  Transmission Date: 20141212
  Serious: Yes (Hospitalization)
  Sender: FDA-Public Use
  Company Number: None

PATIENT
  Age: 74 Year
  Sex: Female
  Weight: 51.2 kg

DRUGS (7)
  1. DOCETAXEL (TAXOTERE) [Suspect]
     Indication: TRANSITIONAL CELL CARCINOMA METASTATIC
     Dosage: 75 MG/M2, Q 3 WEEKS, IV
     Route: 042
     Dates: start: 20130611
  2. LAPATINIB [Suspect]
     Indication: TRANSITIONAL CELL CARCINOMA METASTATIC
     Route: 048
     Dates: start: 20130611
  3. LOSARTAN 100 MG [Concomitant]
  4. PRILOSEC 20 MG [Concomitant]
  5. SIMVASTATIN 20 MG [Concomitant]
  6. VICODIN 5/500 MG [Concomitant]
  7. SENNA [Concomitant]

REACTIONS (7)
  - Constipation [None]
  - Diarrhoea [None]
  - Nausea [None]
  - Vomiting [None]
  - Asthenia [None]
  - Hypotension [None]
  - Dehydration [None]
